FAERS Safety Report 21263354 (Version 22)
Quarter: 2025Q1

REPORT INFORMATION
  Report Type: Spontaneous
  Country: CA (occurrence: CA)
  Receive Date: 20220829
  Receipt Date: 20250327
  Transmission Date: 20250409
  Serious: Yes (Death, Hospitalization, Disabling)
  Sender: ROCHE
  Company Number: CA-ROCHE-3164824

PATIENT
  Age: 44 Year
  Sex: Female
  Weight: 97.0 kg

DRUGS (31)
  1. RITUXIMAB [Suspect]
     Active Substance: RITUXIMAB
     Indication: Rheumatoid arthritis
     Route: 016
  2. RITUXIMAB [Suspect]
     Active Substance: RITUXIMAB
     Route: 058
  3. RITUXIMAB [Suspect]
     Active Substance: RITUXIMAB
     Route: 042
  4. RITUXIMAB [Suspect]
     Active Substance: RITUXIMAB
     Route: 048
  5. ACTEMRA [Suspect]
     Active Substance: TOCILIZUMAB
     Indication: Rheumatoid arthritis
     Route: 042
  6. ACTEMRA [Suspect]
     Active Substance: TOCILIZUMAB
     Route: 042
  7. ACTEMRA [Suspect]
     Active Substance: TOCILIZUMAB
     Route: 042
  8. ACTEMRA [Suspect]
     Active Substance: TOCILIZUMAB
     Route: 042
  9. ACTEMRA [Suspect]
     Active Substance: TOCILIZUMAB
     Route: 042
  10. ACTEMRA [Suspect]
     Active Substance: TOCILIZUMAB
     Route: 042
  11. ACTEMRA [Suspect]
     Active Substance: TOCILIZUMAB
     Route: 042
  12. ACTEMRA [Suspect]
     Active Substance: TOCILIZUMAB
     Route: 042
  13. ACTEMRA [Suspect]
     Active Substance: TOCILIZUMAB
     Route: 042
  14. ACTEMRA [Suspect]
     Active Substance: TOCILIZUMAB
     Route: 042
  15. ACTEMRA [Suspect]
     Active Substance: TOCILIZUMAB
     Route: 042
  16. ACTEMRA [Suspect]
     Active Substance: TOCILIZUMAB
     Route: 048
  17. ACTEMRA [Suspect]
     Active Substance: TOCILIZUMAB
     Route: 065
  18. ACTEMRA [Suspect]
     Active Substance: TOCILIZUMAB
     Route: 065
  19. ACTEMRA [Suspect]
     Active Substance: TOCILIZUMAB
     Route: 065
  20. ACTEMRA [Suspect]
     Active Substance: TOCILIZUMAB
     Route: 058
  21. ACTEMRA [Suspect]
     Active Substance: TOCILIZUMAB
     Route: 065
  22. ACTEMRA [Suspect]
     Active Substance: TOCILIZUMAB
     Route: 048
  23. ACTEMRA [Suspect]
     Active Substance: TOCILIZUMAB
     Route: 065
  24. CODEINE [Concomitant]
     Active Substance: CODEINE
  25. DESOGESTREL\ETHINYL ESTRADIOL [Concomitant]
     Active Substance: DESOGESTREL\ETHINYL ESTRADIOL
  26. IBUPROFEN [Concomitant]
     Active Substance: IBUPROFEN
  27. MARVELON [Concomitant]
     Active Substance: DESOGESTREL\ETHINYL ESTRADIOL
  28. FISH OIL [Concomitant]
     Active Substance: FISH OIL
  29. TRIMETHOPRIM [Concomitant]
     Active Substance: TRIMETHOPRIM
  30. TYLENOL WITH CODEINE [Concomitant]
     Active Substance: ACETAMINOPHEN\CODEINE PHOSPHATE
  31. ZOPICLONE [Concomitant]
     Active Substance: ZOPICLONE

REACTIONS (195)
  - Abdominal discomfort [Fatal]
  - Alopecia [Fatal]
  - Anti-cyclic citrullinated peptide antibody positive [Fatal]
  - Arthralgia [Fatal]
  - Arthropathy [Fatal]
  - Autoimmune disorder [Fatal]
  - Blister [Fatal]
  - Blood cholesterol increased [Fatal]
  - Chest pain [Fatal]
  - Condition aggravated [Fatal]
  - Confusional state [Fatal]
  - Contusion [Fatal]
  - Deep vein thrombosis postoperative [Fatal]
  - Discomfort [Fatal]
  - Drug intolerance [Fatal]
  - Duodenal ulcer perforation [Fatal]
  - Dyspnoea [Not Recovered/Not Resolved]
  - Fatigue [Fatal]
  - Folliculitis [Fatal]
  - Gait inability [Fatal]
  - Gastrointestinal disorder [Fatal]
  - Glossodynia [Fatal]
  - Hand deformity [Not Recovered/Not Resolved]
  - Headache [Fatal]
  - Helicobacter infection [Fatal]
  - Hepatic enzyme increased [Fatal]
  - Hip arthroplasty [Fatal]
  - Hypersensitivity [Not Recovered/Not Resolved]
  - Hypertension [Fatal]
  - Impaired healing [Fatal]
  - Infection [Not Recovered/Not Resolved]
  - Infusion related reaction [Fatal]
  - Insomnia [Fatal]
  - Irritable bowel syndrome [Fatal]
  - Joint swelling [Fatal]
  - Knee arthroplasty [Fatal]
  - Lower limb fracture [Fatal]
  - Lower respiratory tract infection [Fatal]
  - Muscle injury [Fatal]
  - Musculoskeletal stiffness [Fatal]
  - Nasopharyngitis [Fatal]
  - Pain [Fatal]
  - Pemphigus [Fatal]
  - Pericarditis [Fatal]
  - Peripheral swelling [Not Recovered/Not Resolved]
  - Pruritus [Not Recovered/Not Resolved]
  - Pyrexia [Fatal]
  - Rash [Not Recovered/Not Resolved]
  - Rheumatic fever [Not Recovered/Not Resolved]
  - Rheumatoid arthritis [Fatal]
  - Rheumatoid factor positive [Not Recovered/Not Resolved]
  - Road traffic accident [Not Recovered/Not Resolved]
  - Sinusitis [Not Recovered/Not Resolved]
  - Sleep disorder [Fatal]
  - Sleep disorder due to general medical condition, insomnia type [Not Recovered/Not Resolved]
  - Stomatitis [Fatal]
  - Swelling [Not Recovered/Not Resolved]
  - Swollen joint count increased [Not Recovered/Not Resolved]
  - Synovitis [Not Recovered/Not Resolved]
  - Systemic lupus erythematosus [Fatal]
  - Therapeutic product effect decreased [Unknown]
  - Therapy non-responder [Not Recovered/Not Resolved]
  - Urticaria [Not Recovered/Not Resolved]
  - Weight increased [Not Recovered/Not Resolved]
  - Wound [Not Recovered/Not Resolved]
  - Contraindicated product administered [Unknown]
  - Treatment failure [Unknown]
  - Drug ineffective [Unknown]
  - Maternal exposure during pregnancy [Unknown]
  - Maternal exposure timing unspecified [Unknown]
  - Medication error [Unknown]
  - Off label use [Unknown]
  - Product use issue [Unknown]
  - General physical health deterioration [Fatal]
  - Abdominal pain [Not Recovered/Not Resolved]
  - Abdominal pain upper [Not Recovered/Not Resolved]
  - Anxiety [Fatal]
  - Asthenia [Not Recovered/Not Resolved]
  - Asthma [Fatal]
  - Bursitis [Fatal]
  - C-reactive protein abnormal [Not Recovered/Not Resolved]
  - Diarrhoea [Not Recovered/Not Resolved]
  - Dizziness [Fatal]
  - Dry mouth [Fatal]
  - Facet joint syndrome [Fatal]
  - Fibromyalgia [Not Recovered/Not Resolved]
  - Inflammation [Fatal]
  - Injury [Not Recovered/Not Resolved]
  - Joint range of motion decreased [Not Recovered/Not Resolved]
  - Lip dry [Not Recovered/Not Resolved]
  - Liver disorder [Not Recovered/Not Resolved]
  - Lung disorder [Fatal]
  - Muscle spasms [Not Recovered/Not Resolved]
  - Musculoskeletal pain [Fatal]
  - Night sweats [Fatal]
  - Obesity [Fatal]
  - Oedema [Not Recovered/Not Resolved]
  - Oedema peripheral [Fatal]
  - Osteoarthritis [Fatal]
  - Paraesthesia [Fatal]
  - Peripheral venous disease [Fatal]
  - Prescribed overdose [Not Recovered/Not Resolved]
  - Psoriatic arthropathy [Fatal]
  - Vomiting [Not Recovered/Not Resolved]
  - Wheezing [Not Recovered/Not Resolved]
  - Decreased appetite [Fatal]
  - Hypoaesthesia [Not Recovered/Not Resolved]
  - Malaise [Fatal]
  - Mobility decreased [Fatal]
  - Type 2 diabetes mellitus [Fatal]
  - Nausea [Fatal]
  - Liver injury [Fatal]
  - Adjustment disorder with depressed mood [Fatal]
  - Amnesia [Fatal]
  - Bone erosion [Fatal]
  - Breast cancer stage III [Fatal]
  - Colitis [Fatal]
  - Colitis ulcerative [Fatal]
  - Crohn^s disease [Fatal]
  - Delirium [Fatal]
  - Depression [Fatal]
  - Dislocation of vertebra [Fatal]
  - Drug hypersensitivity [Fatal]
  - Feeling hot [Fatal]
  - Joint arthroplasty [Fatal]
  - Lupus-like syndrome [Fatal]
  - Osteoporosis [Fatal]
  - Pancreatitis [Fatal]
  - Pneumonia [Fatal]
  - Porphyria acute [Fatal]
  - Pulmonary fibrosis [Fatal]
  - Rectal haemorrhage [Fatal]
  - Retinitis [Fatal]
  - Sciatica [Fatal]
  - Weight fluctuation [Fatal]
  - Wound infection [Fatal]
  - Dyspepsia [Fatal]
  - Ear infection [Fatal]
  - Exostosis [Fatal]
  - Foot deformity [Fatal]
  - Frequent bowel movements [Fatal]
  - Gait disturbance [Fatal]
  - Grip strength [Fatal]
  - Grip strength decreased [Fatal]
  - Hepatic cirrhosis [Fatal]
  - Hypercholesterolaemia [Fatal]
  - Laboratory test abnormal [Fatal]
  - Laryngitis [Fatal]
  - Loss of personal independence in daily activities [Fatal]
  - Lupus vulgaris [Fatal]
  - Memory impairment [Fatal]
  - Migraine [Fatal]
  - Muscular weakness [Fatal]
  - Swollen joint count [Fatal]
  - Walking aid user [Fatal]
  - Weight decreased [Fatal]
  - White blood cell count increased [Fatal]
  - X-ray abnormal [Fatal]
  - Arthritis [Fatal]
  - Adjustment disorder with depressed mood [Fatal]
  - Anti-cyclic citrullinated peptide antibody positive [Fatal]
  - General physical health deterioration [Fatal]
  - Joint range of motion decreased [Fatal]
  - Loss of personal independence in daily activities [Fatal]
  - Visual impairment [Fatal]
  - White blood cell count increased [Fatal]
  - Pustular psoriasis [Fatal]
  - Psoriasis [Fatal]
  - Pain in extremity [Fatal]
  - Myositis [Fatal]
  - General symptom [Fatal]
  - Fluid retention [Fatal]
  - Back disorder [Fatal]
  - Bronchitis [Fatal]
  - Ear pain [Fatal]
  - Seronegative arthritis [Fatal]
  - Spinal fusion surgery [Fatal]
  - Spondylitis [Fatal]
  - Tachycardia [Fatal]
  - Upper respiratory tract infection [Fatal]
  - C-reactive protein [Fatal]
  - Off label use [Fatal]
  - Therapeutic product effect decreased [Fatal]
  - Rash vesicular [Fatal]
  - Subcutaneous drug absorption impaired [Fatal]
  - Thrombocytopenia [Fatal]
  - Joint stiffness [Fatal]
  - Neoplasm progression [Fatal]
  - Respiratory disorder [Fatal]
  - Sleep disorder due to a general medical condition [Fatal]
  - White blood cell count increased [Fatal]
  - Blepharospasm [Fatal]
  - Epilepsy [Fatal]
  - Gastrooesophageal reflux disease [Fatal]
  - Taste disorder [Fatal]
